FAERS Safety Report 9205828 (Version 2)
Quarter: 2015Q1

REPORT INFORMATION
  Report Type: Spontaneous
  Country: US (occurrence: None)
  Receive Date: 20130401
  Receipt Date: 20150210
  Transmission Date: 20150721
  Serious: Yes (Disabling, Other)
  Sender: FDA-Public Use
  Company Number: 1303-377

PATIENT
  Age: 65 Year
  Sex: Male

DRUGS (2)
  1. BETADINE (POVIDONE-IODINE) [Concomitant]
  2. EYLEA [Suspect]
     Active Substance: AFLIBERCEPT
     Indication: NEOVASCULAR AGE-RELATED MACULAR DEGENERATION
     Dosage: 2 MG DOSES EVERY 6-8 WEEKS.
     Route: 031
     Dates: start: 20120120

REACTIONS (2)
  - Blindness [None]
  - Endophthalmitis [None]

NARRATIVE: CASE EVENT DATE: 20130319
